FAERS Safety Report 11702457 (Version 1)
Quarter: 2015Q4

REPORT INFORMATION
  Report Type: Spontaneous
  Country: US (occurrence: US)
  Receive Date: 20151105
  Receipt Date: 20151105
  Transmission Date: 20160304
  Serious: Yes (Other)
  Sender: FDA-Public Use
  Company Number: US-ELI_LILLY_AND_COMPANY-US201510009733

PATIENT
  Sex: Female

DRUGS (2)
  1. HUMULIN 70/30 [Suspect]
     Active Substance: INSULIN HUMAN
     Indication: TYPE 2 DIABETES MELLITUS
     Dosage: UNK UNK, PRN
     Route: 065
  2. LIOTHYRONINE [Concomitant]
     Active Substance: LIOTHYRONINE
     Dosage: 5 MG, BID

REACTIONS (9)
  - Blood glucose decreased [Unknown]
  - Fall [Unknown]
  - Thyroid disorder [Unknown]
  - Blood glucose increased [Unknown]
  - Weight increased [Unknown]
  - Hip fracture [Unknown]
  - Post procedural infection [Unknown]
  - Decreased appetite [Unknown]
  - Weight decreased [Recovered/Resolved]
